FAERS Safety Report 6426972-1 (Version None)
Quarter: 2009Q4

REPORT INFORMATION
  Report Type: 
  Country: None (occurrence: None)
  Receive Date: 20091103
  Receipt Date: 20091103
  Transmission Date: 20100525
  Serious: No
  Sender: FDA-Public Use
  Company Number: None

PATIENT
  Age: 66 Year
  Sex: Male
  Weight: 91 kg

DRUGS (1)
  1. AMMONIUM LACTATE [Suspect]
     Indication: SKIN DISORDER
     Dosage: ML
     Dates: start: 20090112, end: 20090901

REACTIONS (1)
  - RASH [None]
